FAERS Safety Report 7783865-5 (Version None)
Quarter: 2011Q3

REPORT INFORMATION
  Report Type: 
  Country: None (occurrence: None)
  Receive Date: 20110928
  Receipt Date: 20110922
  Transmission Date: 20111222
  Serious: Yes (Hospitalization)
  Sender: FDA-Public Use
  Company Number: US-GLAXOSMITHKLINE-A0885769A

PATIENT
  Age: 54 Year
  Sex: Male
  Weight: 133.6 kg

DRUGS (8)
  1. SIMVASTATIN [Concomitant]
  2. LANTUS [Concomitant]
  3. AVANDIA [Suspect]
     Indication: DIABETES MELLITUS
     Dosage: 8MG PER DAY
     Route: 048
     Dates: end: 20070101
  4. ALTACE [Concomitant]
  5. PAXIL [Concomitant]
  6. GLIPIZIDE [Concomitant]
     Dates: end: 20041104
  7. METFORMIN HCL [Concomitant]
     Dates: start: 20041104
  8. PRANDIN [Concomitant]
     Dates: start: 20041104

REACTIONS (4)
  - CARDIAC ARREST [None]
  - ACUTE MYOCARDIAL INFARCTION [None]
  - CARDIAC FAILURE CONGESTIVE [None]
  - ACUTE CORONARY SYNDROME [None]
